FAERS Safety Report 6003805-9 (Version None)
Quarter: 2008Q4

REPORT INFORMATION
  Report Type: 
  Country: None (occurrence: None)
  Receive Date: 20081216
  Receipt Date: 20081209
  Transmission Date: 20090506
  Serious: Yes (Other)
  Sender: FDA-Public Use
  Company Number: DE-AVENTIS-200812906DE

PATIENT
  Sex: Female

DRUGS (1)
  1. TRENTAL [Suspect]
     Indication: DRUG USE FOR UNKNOWN INDICATION
     Route: 048
     Dates: start: 20070101

REACTIONS (2)
  - BONE MARROW FAILURE [None]
  - RED BLOOD CELL COUNT DECREASED [None]
